FAERS Safety Report 7450412-7 (Version None)
Quarter: 2011Q2

REPORT INFORMATION
  Report Type: 
  Country: None (occurrence: None)
  Receive Date: 20110502
  Receipt Date: 20110421
  Transmission Date: 20111010
  Serious: Yes (Other)
  Sender: FDA-Public Use
  Company Number: JP-CTI_01347_2011

PATIENT
  Age: 43 Year
  Sex: Male

DRUGS (2)
  1. TRANEXAMIC ACID [Concomitant]
     Indication: OTITIS MEDIA
     Route: 048
     Dates: start: 20110331, end: 20110402
  2. MEIACT MS TABLET (CEFDITOREN PIVOXIL) [Suspect]
     Indication: OTITIS MEDIA
     Route: 048
     Dates: start: 20110331, end: 20110402

REACTIONS (1)
  - HAEMATOCHEZIA [None]
